FAERS Safety Report 5578728-X (Version None)
Quarter: 2007Q4

REPORT INFORMATION
  Report Type: 
  Country: None (occurrence: None)
  Receive Date: 20071221
  Receipt Date: 20071213
  Transmission Date: 20080405
  Serious: Yes (Other)
  Sender: FDA-Public Use
  Company Number: 2007337741

PATIENT
  Age: 66 Year
  Sex: Female
  Weight: 61.2 kg

DRUGS (1)
  1. BENADRYL [Suspect]
     Indication: INFLUENZA
     Dosage: ONE TABLET, ONCE, ORAL
     Route: 048
     Dates: start: 20071212, end: 20071212

REACTIONS (9)
  - CHILLS [None]
  - CONFUSIONAL STATE [None]
  - DIARRHOEA [None]
  - DISORIENTATION [None]
  - DIZZINESS [None]
  - DRY THROAT [None]
  - DYSARTHRIA [None]
  - SELF-MEDICATION [None]
  - VOMITING [None]
